FAERS Safety Report 8605798-4 (Version None)
Quarter: 2012Q3

REPORT INFORMATION
  Report Type: 
  Country: None (occurrence: None)
  Receive Date: 20120807
  Receipt Date: 20120723
  Transmission Date: 20120928
  Serious: Yes (Hospitalization, Other)
  Sender: FDA-Public Use
  Company Number: DSJ-2012-13566

PATIENT
  Age: 80 Year
  Sex: Female

DRUGS (5)
  1. REGULAR INSULIN (INSULIN PORCINE) (INSULIN PORCINE) [Concomitant]
  2. BENICAR [Suspect]
     Indication: HYPERTENSION
     Dosage: 20 MG (20 MG, 1 IN 1 D), PER ORAL
     Route: 048
     Dates: start: 20091001, end: 20120701
  3. MEDICINE FOR INTESTINAL CONSTIPATION [Concomitant]
  4. NPH INSULIN (INSULIN IJECTION, ISOPHANE) (INSULIN INJECITON, ISOPHANE) [Concomitant]
  5. VITAMIN B1/VITAMIN B2/ VITAMIN B3/ VITAMIN B5/VITAMIN B6 [Concomitant]

REACTIONS (22)
  - CONSTIPATION [None]
  - DRUG INEFFECTIVE [None]
  - CHEST PAIN [None]
  - BLINDNESS UNILATERAL [None]
  - PAIN [None]
  - CHILLS [None]
  - VOMITING [None]
  - BLOOD PRESSURE INCREASED [None]
  - FALL [None]
  - NAUSEA [None]
  - PRURITUS [None]
  - ABDOMINAL PAIN UPPER [None]
  - VISUAL ACUITY REDUCED [None]
  - PANCREATITIS [None]
  - HYPERHIDROSIS [None]
  - POLYURIA [None]
  - DIZZINESS [None]
  - COUGH [None]
  - HEADACHE [None]
  - DRUG ADMINISTRATION ERROR [None]
  - ILL-DEFINED DISORDER [None]
  - OEDEMA DUE TO HEPATIC DISEASE [None]
